FAERS Safety Report 8923903 (Version 2)
Quarter: 2013Q1

REPORT INFORMATION
  Report Type: Report from Study
  Country: NO (occurrence: NO)
  Receive Date: 20121127
  Receipt Date: 20121221
  Transmission Date: 20140127
  Serious: Yes (Other)
  Sender: FDA-Public Use
  Company Number: NO-ACCORD-015287

PATIENT
  Sex: 0

DRUGS (4)
  1. MYCOPHENOLATE MOFETIL (MYCOPHENOLATE MOFETIL) [Suspect]
     Indication: PROPHYLAXIS AGAINST TRANSPLANT REJECTION
  2. TACROLIMUS (TACROLIMUS) [Suspect]
     Indication: IMMUNOSUPPRESSION
  3. FLUDARA(FLUDARA) [Suspect]
     Indication: STEM CELL TRANSPLANT
  4. PREDNISOLONE (PRESNISOLONE) [Suspect]
     Indication: PROPHYLAXIS AGAINST TRANSPLANT REJECTION
     Dosage: 1.00 TIMES PER 1.0 DAYS

REACTIONS (3)
  - Obliterative bronchiolitis [Unknown]
  - Chronic graft versus host disease [Unknown]
  - Off label use [Unknown]
